FAERS Safety Report 9263788 (Version 1)
Quarter: 2013Q2

REPORT INFORMATION
  Report Type: Spontaneous
  Country: US (occurrence: None)
  Receive Date: 20130429
  Receipt Date: 20130429
  Transmission Date: 20140414
  Serious: Yes (Other)
  Sender: FDA-Public Use
  Company Number: None

PATIENT
  Age: 58 Year
  Sex: Male

DRUGS (3)
  1. ENBREL [Suspect]
     Route: 058
     Dates: start: 20120503, end: 20130426
  2. LOSARTAN [Concomitant]
  3. HCTZ [Concomitant]

REACTIONS (2)
  - Hypoaesthesia [None]
  - Paraesthesia [None]
